FAERS Safety Report 8822847 (Version 2)
Quarter: 2012Q4

REPORT INFORMATION
  Report Type: 
  Country: BE (occurrence: BE)
  Receive Date: 20121003
  Receipt Date: 20121221
  Transmission Date: 20130627
  Serious: Yes (Hospitalization)
  Sender: FDA-Public Use
  Company Number: BE-INCYTE CORPORATION-2012IN000304

PATIENT
  Age: 73 Year
  Sex: Female

DRUGS (23)
  1. INC424 [Suspect]
     Indication: MYELOFIBROSIS
     Dosage: 20 mg, bid
     Route: 048
     Dates: start: 20110415, end: 20120205
  2. INC424 [Suspect]
     Dosage: 15 mg, bid
     Route: 048
     Dates: start: 20120206, end: 20120830
  3. INC424 [Suspect]
     Dosage: 5 mg, bid
     Route: 048
     Dates: start: 20120831, end: 20120903
  4. INC424 [Suspect]
     Dosage: 5 mg, qd
     Route: 048
     Dates: start: 20121010, end: 20121017
  5. INC424 [Suspect]
     Dosage: 5 mg, bid
     Route: 048
     Dates: start: 20121018, end: 20121118
  6. INC424 [Suspect]
     Dosage: 15 mg, qd
     Route: 048
     Dates: start: 20121119, end: 20121126
  7. INC424 [Suspect]
     Dosage: 10 mg, bid
     Route: 048
     Dates: start: 20121127
  8. GLICLAZIDE [Concomitant]
     Dosage: UNK
     Dates: start: 2007
  9. CLOTIAZEPAM [Concomitant]
     Dosage: UNK
     Dates: start: 201001
  10. SOTALOL [Concomitant]
     Dosage: UNK
     Dates: start: 20100615
  11. LORMETAZEPAM [Concomitant]
     Dosage: UNK
     Dates: start: 20100825
  12. PARACETAMOL [Concomitant]
     Dosage: UNK
     Dates: start: 200908
  13. METOCLOPRAMIDE [Concomitant]
     Dosage: UNK
     Dates: start: 20100921
  14. BISOPROLOL [Concomitant]
     Dosage: UNK
     Dates: start: 201101
  15. MACROGOL [Concomitant]
     Dosage: UNK
     Dates: start: 20110323
  16. OTILONIUM BROMIDE [Concomitant]
     Dosage: UNK
     Dates: start: 201108
  17. FIBION [Concomitant]
     Dosage: UNK
     Dates: start: 200908
  18. PANTOPRAZOLE [Concomitant]
     Dosage: UNK
     Dates: start: 20111228
  19. SULPIRIDE [Concomitant]
     Dosage: UNK
     Dates: start: 20111231
  20. MOMETASONE [Concomitant]
     Dosage: UNK
     Dates: start: 20111231
  21. SERETIDE [Concomitant]
     Dosage: UNK
     Dates: start: 20120107
  22. LAXOBERON [Concomitant]
     Dosage: UNK
     Dates: start: 20120118
  23. OXYBUTYNIN [Concomitant]
     Dosage: UNK
     Dates: start: 20120229

REACTIONS (4)
  - Gastrointestinal infection [Recovered/Resolved]
  - Clostridial infection [Recovered/Resolved]
  - Pneumonia [Not Recovered/Not Resolved]
  - Infection [Recovered/Resolved]
